FAERS Safety Report 5158139-1 (Version None)
Quarter: 2006Q4

REPORT INFORMATION
  Report Type: 
  Country: None (occurrence: None)
  Receive Date: 20061121
  Receipt Date: 20061121
  Transmission Date: 20070319
  Serious: Yes (Life-Threatening, Hospitalization)
  Sender: FDA-Public Use
  Company Number: None

PATIENT
  Age: 25 Year
  Sex: Male
  Weight: 72 kg

DRUGS (3)
  1. CLOZAPINE 100 MG TABLETS, 75 MG TABLETS [Suspect]
     Indication: SCHIZOPHRENIA
     Dosage: 175 MG DAILY -Q 24H- PO
     Route: 048
     Dates: start: 20061019, end: 20061112
  2. ARIPIPRAZOLE 15MG TABLETS [Suspect]
     Dosage: 30MG DAILY -Q24H- PO (PRIOR TO 09/06)
     Route: 048
  3. CITALOPRAM HYDROBROMIDE [Concomitant]

REACTIONS (10)
  - ABDOMINAL PAIN UPPER [None]
  - BRONCHOSPASM [None]
  - DIARRHOEA [None]
  - EOSINOPHIL COUNT INCREASED [None]
  - FATIGUE [None]
  - NASAL CONGESTION [None]
  - PHARYNGOLARYNGEAL PAIN [None]
  - PYREXIA [None]
  - VOMITING [None]
  - WHITE BLOOD CELL COUNT INCREASED [None]
